FAERS Safety Report 8196356-7 (Version None)
Quarter: 2012Q1

REPORT INFORMATION
  Report Type: 
  Country: None (occurrence: None)
  Receive Date: 20120309
  Receipt Date: 20120305
  Transmission Date: 20120608
  Serious: No
  Sender: FDA-Public Use
  Company Number: US-PFIZER INC-2012059880

PATIENT
  Sex: Female
  Weight: 61.224 kg

DRUGS (3)
  1. CHANTIX [Suspect]
     Dosage: 0.5 MG, DAILY
     Route: 048
     Dates: start: 20120223, end: 20120101
  2. CHANTIX [Suspect]
     Indication: SMOKING CESSATION THERAPY
     Dosage: 0.5 MG, DAILY
     Route: 048
     Dates: start: 20080101
  3. CHANTIX [Suspect]
     Dosage: 1 MG, UNK
     Route: 048
     Dates: start: 20120101

REACTIONS (2)
  - DRUG INTOLERANCE [None]
  - ABDOMINAL DISCOMFORT [None]
